FAERS Safety Report 7148239-9 (Version None)
Quarter: 2010Q4

REPORT INFORMATION
  Report Type: 
  Country: None (occurrence: None)
  Receive Date: 20101209
  Receipt Date: 20101205
  Transmission Date: 20110411
  Serious: Yes (Death, Other)
  Sender: FDA-Public Use
  Company Number: PHHO2010SA18524

PATIENT
  Sex: Female

DRUGS (1)
  1. RAD001 [Suspect]
     Indication: METASTATIC RENAL CELL CARCINOMA
     Dosage: 10 MG QD
     Route: 048
     Dates: start: 20100115, end: 20101205

REACTIONS (2)
  - ANAEMIA [None]
  - DEATH [None]
